FAERS Safety Report 8226135-3 (Version None)
Quarter: 2012Q1

REPORT INFORMATION
  Report Type: 
  Country: None (occurrence: None)
  Receive Date: 20120319
  Receipt Date: 20120307
  Transmission Date: 20120608
  Serious: Yes (Disabling)
  Sender: FDA-Public Use
  Company Number: 2012GB0091

PATIENT
  Age: 66 Year
  Sex: Male

DRUGS (1)
  1. ANAKINRA (ANAKINRA) [Suspect]
     Indication: RHEUMATOID ARTHRITIS
     Dosage: (100 MG), SUBCUTANEOUS
     Route: 058
     Dates: start: 20020418

REACTIONS (2)
  - DISEASE PROGRESSION [None]
  - PARKINSONISM [None]
